FAERS Safety Report 15465351 (Version 2)
Quarter: 2018Q4

REPORT INFORMATION
  Report Type: Spontaneous
  Country: US (occurrence: US)
  Receive Date: 20181004
  Receipt Date: 20181214
  Transmission Date: 20190204
  Serious: No
  Sender: FDA-Public Use
  Company Number: US-BRISTOL-MYERS SQUIBB COMPANY-BMS-2018-089526

PATIENT
  Sex: Female
  Weight: 88.9 kg

DRUGS (2)
  1. ORENCIA [Suspect]
     Active Substance: ABATACEPT
     Indication: RHEUMATOID ARTHRITIS
     Dosage: 125 MG, QWK
     Route: 058
     Dates: start: 201807
  2. ORENCIA [Suspect]
     Active Substance: ABATACEPT
     Indication: ANKYLOSING SPONDYLITIS
     Route: 065

REACTIONS (2)
  - Nausea [Unknown]
  - Upper respiratory tract infection [Unknown]
